FAERS Safety Report 20500764 (Version 1)
Quarter: 2022Q1

REPORT INFORMATION
  Report Type: Spontaneous
  Country: US (occurrence: None)
  Receive Date: 20220222
  Receipt Date: 20220222
  Transmission Date: 20220423
  Serious: No
  Sender: FDA-Public Use
  Company Number: 2022A064675

PATIENT
  Sex: Female
  Weight: 77.1 kg

DRUGS (1)
  1. BUDESONIDE\FORMOTEROL [Suspect]
     Active Substance: BUDESONIDE\FORMOTEROL
     Indication: Asthma
     Dosage: 160/4.5MCG, 2 INHALATIONS, TWICE DAILY
     Route: 055
     Dates: start: 202111

REACTIONS (4)
  - Tachypnoea [Not Recovered/Not Resolved]
  - Dyspnoea [Not Recovered/Not Resolved]
  - Arthritis [Not Recovered/Not Resolved]
  - Exercise lack of [Not Recovered/Not Resolved]
